FAERS Safety Report 9479112 (Version 2)
Quarter: 2013Q3

REPORT INFORMATION
  Report Type: Report from Study
  Country: FR (occurrence: FR)
  Receive Date: 20130827
  Receipt Date: 20130925
  Transmission Date: 20140515
  Serious: Yes (Other)
  Sender: FDA-Public Use
  Company Number: FR-GLAXOSMITHKLINE-B0917163A

PATIENT
  Age: 64 Year
  Sex: Female
  Weight: 70 kg

DRUGS (4)
  1. PAZOPANIB [Suspect]
     Indication: LEIOMYOSARCOMA
     Dosage: 8800MG CUMULATIVE DOSE
     Route: 048
     Dates: start: 20130716, end: 20130726
  2. GEMZAR [Suspect]
     Indication: LEIOMYOSARCOMA
     Dosage: 1850MG CYCLIC
     Route: 042
     Dates: start: 20130716
  3. ZOLPIDEM [Concomitant]
     Indication: SEDATION
     Route: 048
     Dates: start: 201202
  4. DAFLON [Concomitant]
     Indication: HAEMORRHOIDS
     Route: 048
     Dates: start: 20130726, end: 20130805

REACTIONS (1)
  - Neutropenia [Recovered/Resolved]
